FAERS Safety Report 8494322 (Version 6)
Quarter: 2012Q4

REPORT INFORMATION
  Report Type: 
  Country: US (occurrence: US)
  Receive Date: 20120404
  Receipt Date: 20121101
  Transmission Date: 20130627
  Serious: Yes (Other)
  Sender: FDA-Public Use
  Company Number: US-PFIZER INC-2012080543

PATIENT
  Age: 42 Year
  Sex: Female
  Weight: 61.2 kg

DRUGS (9)
  1. EFFEXOR XR [Suspect]
     Indication: DEPRESSION
     Dosage: 300 mg, daily
     Route: 048
     Dates: end: 2006
  2. EFFEXOR [Suspect]
     Indication: DEPRESSION
     Dosage: 150 mg,in the morning
     Route: 048
     Dates: start: 2006, end: 201209
  3. EFFEXOR [Suspect]
     Dosage: 150 mg, daily
     Route: 048
     Dates: start: 201209
  4. GEODON [Suspect]
     Indication: BIPOLAR DISORDER
     Dosage: 80 mg,at night
     Route: 048
  5. PROTONIX [Suspect]
     Dosage: UNK
     Route: 065
  6. XANAX [Suspect]
     Indication: ANXIETY
     Dosage: UNK
     Route: 048
  7. XANAX [Suspect]
     Dosage: 1.5 Dosage forms,4 in 1 D
     Route: 048
  8. ADDERALL [Suspect]
     Indication: ATTENTION DEFICIT DISORDER
     Dosage: 2.5 Dosage forms,1 in 1 D
     Route: 048
  9. SEROQUEL [Suspect]
     Indication: BIPOLAR DISORDER
     Dosage: 300 mg, daily

REACTIONS (9)
  - Suicidal ideation [Unknown]
  - Drug dependence [Unknown]
  - Mood swings [Unknown]
  - Hallucination [Unknown]
  - Depressed mood [Unknown]
  - Abnormal behaviour [Unknown]
  - Oedema [Recovered/Resolved]
  - Loss of libido [Unknown]
  - Medication error [Unknown]
